FAERS Safety Report 8327805-9 (Version None)
Quarter: 2012Q2

REPORT INFORMATION
  Report Type: 
  Country: None (occurrence: None)
  Receive Date: 20120502
  Receipt Date: 20120426
  Transmission Date: 20120825
  Serious: No
  Sender: FDA-Public Use
  Company Number: US-PFIZER INC-2012061311

PATIENT
  Sex: Female

DRUGS (14)
  1. PRISTIQ [Suspect]
     Dosage: UNK
  2. MEDROL [Suspect]
     Dosage: UNK
  3. VISTARIL [Suspect]
     Dosage: UNK
  4. ZITHROMAX [Suspect]
     Dosage: UNK
  5. VIBRAMYCIN [Suspect]
     Dosage: UNK
     Route: 065
  6. DEPO-MEDROL [Suspect]
  7. DIFLUCAN [Suspect]
     Dosage: UNK
  8. EFFEXOR XR [Suspect]
     Dosage: UNK
  9. NEURONTIN [Suspect]
     Dosage: UNK
  10. ZYRTEC [Suspect]
     Dosage: UNK
  11. ANTIVERT [Suspect]
     Dosage: UNK
  12. PROTONIX [Suspect]
     Dosage: UNK
  13. ZOLOFT [Suspect]
     Dosage: UNK
     Route: 065
  14. RELPAX [Suspect]
     Dosage: UNK

REACTIONS (3)
  - BLOOD CHOLESTEROL ABNORMAL [None]
  - DEPRESSION [None]
  - BLOOD PRESSURE FLUCTUATION [None]
